FAERS Safety Report 5843415-7 (Version None)
Quarter: 2008Q3

REPORT INFORMATION
  Report Type: 
  Country: None (occurrence: None)
  Receive Date: 20080813
  Receipt Date: 20080806
  Transmission Date: 20090109
  Serious: Yes (Other)
  Sender: FDA-Public Use
  Company Number: B0532054A

PATIENT
  Age: 50 Year
  Sex: Female

DRUGS (8)
  1. SERETIDE [Suspect]
     Indication: ASTHMA
     Dosage: 2PUFF TWICE PER DAY
     Route: 055
  2. VENTOLIN [Suspect]
     Indication: ASTHMA
     Dosage: 100MCG AS REQUIRED
     Route: 055
  3. ASPIRIN [Concomitant]
  4. ADIZEM [Concomitant]
  5. BENDROFLUAZIDE [Concomitant]
  6. GLYCEROL 2.6% [Concomitant]
  7. ATORVASTATIN [Concomitant]
  8. CO-CODAMOL [Concomitant]

REACTIONS (4)
  - ASTHMA [None]
  - COUGH [None]
  - DYSPNOEA [None]
  - NASOPHARYNGITIS [None]
